FAERS Safety Report 8943637 (Version 1)
Quarter: 2012Q4

REPORT INFORMATION
  Report Type: Report from Study
  Country: NL (occurrence: NL)
  Receive Date: 20121203
  Receipt Date: 20121203
  Transmission Date: 20130627
  Serious: Yes (Hospitalization)
  Sender: FDA-Public Use
  Company Number: NL-BAXTER-2012BAX025370

PATIENT
  Age: 68 Year
  Sex: Male
  Weight: 76 kg

DRUGS (12)
  1. ENDOXAN I.V., POEDER VOOR OPLOSSING VOOR INJECTIE 200, 500, 1000 MG [Suspect]
     Indication: MALIGNANT LYMPHOID NEOPLASM
     Route: 042
     Dates: start: 20110811
  2. ENDOXAN I.V., POEDER VOOR OPLOSSING VOOR INJECTIE 200, 500, 1000 MG [Suspect]
     Route: 042
     Dates: start: 20110826
  3. RITUXIMAB [Suspect]
     Indication: MALIGNANT LYMPHOID NEOPLASM
     Route: 042
     Dates: start: 20110811
  4. RITUXIMAB [Suspect]
     Route: 042
     Dates: start: 20110826
  5. PREDNISONE [Suspect]
     Indication: MALIGNANT LYMPHOID NEOPLASM
     Route: 048
     Dates: start: 20110811
  6. PREDNISONE [Suspect]
     Route: 048
     Dates: start: 20110826
  7. DOXORUBICIN [Suspect]
     Indication: MALIGNANT LYMPHOID NEOPLASM
     Route: 042
     Dates: start: 20110811
  8. DOXORUBICIN [Suspect]
     Route: 042
     Dates: start: 20110826
  9. VINCRISTINE [Suspect]
     Indication: MALIGNANT LYMPHOID NEOPLASM
     Route: 042
     Dates: start: 20110811
  10. VINCRISTINE [Suspect]
     Route: 042
     Dates: start: 20110826
  11. PEGFILGRASTIM [Suspect]
     Indication: MALIGNANT LYMPHOID NEOPLASM
     Route: 058
     Dates: start: 20110811
  12. PEGFILGRASTIM [Suspect]
     Route: 058
     Dates: start: 20110826

REACTIONS (1)
  - Pneumonia [Recovered/Resolved]
